FAERS Safety Report 6809851-7 (Version None)
Quarter: 2010Q2

REPORT INFORMATION
  Report Type: 
  Country: None (occurrence: None)
  Receive Date: 20100630
  Receipt Date: 20100621
  Transmission Date: 20101027
  Serious: Yes (Other)
  Sender: FDA-Public Use
  Company Number: CA-AMGEN-QUU419664

PATIENT
  Sex: Male

DRUGS (6)
  1. NPLATE [Suspect]
     Indication: IDIOPATHIC THROMBOCYTOPENIC PURPURA
     Route: 058
     Dates: start: 20091001, end: 20100604
  2. FRAGMIN [Concomitant]
  3. NORVASC [Concomitant]
  4. CRESTOR [Concomitant]
  5. SPIRONOLACTONE [Concomitant]
  6. NASONEX [Concomitant]

REACTIONS (4)
  - DIARRHOEA [None]
  - DIZZINESS [None]
  - HEADACHE [None]
  - THERAPEUTIC RESPONSE DECREASED [None]
